FAERS Safety Report 13163186 (Version 1)
Quarter: 2017Q1

REPORT INFORMATION
  Report Type: Spontaneous
  Country: US (occurrence: US)
  Receive Date: 20170125
  Receipt Date: 20170125
  Transmission Date: 20170428
  Serious: Yes (Death, Life-Threatening, Hospitalization, Disabling)
  Sender: FDA-Public Use
  Company Number: None

PATIENT
  Age: 65 Year
  Sex: Male
  Weight: 66.6 kg

DRUGS (3)
  1. ONDANSETRON [Concomitant]
     Active Substance: ONDANSETRON
  2. CISPLATIN. [Suspect]
     Active Substance: CISPLATIN
     Indication: NEOPLASM MALIGNANT
     Dosage: ?          OTHER FREQUENCY:3 TIMES MONTHLY;?
     Route: 042
     Dates: start: 20160113, end: 20160630
  3. OXYCODONE [Concomitant]
     Active Substance: OXYCODONE

REACTIONS (5)
  - Dialysis [None]
  - Renal impairment [None]
  - Blood creatinine increased [None]
  - Quality of life decreased [None]
  - Nephropathy toxic [None]

NARRATIVE: CASE EVENT DATE: 20160125
